FAERS Safety Report 16441239 (Version 1)
Quarter: 2019Q2

REPORT INFORMATION
  Report Type: Spontaneous
  Country: US (occurrence: US)
  Receive Date: 20190617
  Receipt Date: 20190617
  Transmission Date: 20190711
  Serious: No
  Sender: FDA-Public Use
  Company Number: US-BRACCO-2018US05474

PATIENT
  Age: 55 Year

DRUGS (1)
  1. PROHANCE [Suspect]
     Active Substance: GADOTERIDOL
     Indication: DIAGNOSTIC PROCEDURE
     Dosage: UNK, SINGLE
     Route: 042
     Dates: start: 20181001, end: 20181001

REACTIONS (2)
  - Sneezing [Unknown]
  - Burning sensation [Unknown]

NARRATIVE: CASE EVENT DATE: 20181001
